FAERS Safety Report 5589535-6 (Version None)
Quarter: 2008Q1

REPORT INFORMATION
  Report Type: 
  Country: None (occurrence: None)
  Receive Date: 20080114
  Receipt Date: 20080102
  Transmission Date: 20080703
  Serious: Yes (Hospitalization)
  Sender: FDA-Public Use
  Company Number: US-AMGEN-QUU258991

PATIENT
  Sex: Female

DRUGS (3)
  1. ENBREL [Suspect]
     Indication: RHEUMATOID ARTHRITIS
     Route: 058
     Dates: start: 20001121
  2. METHOTREXATE [Concomitant]
     Route: 048
     Dates: start: 20001121
  3. PLAQUENIL [Concomitant]
     Route: 048
     Dates: start: 19990101

REACTIONS (4)
  - ARRHYTHMIA [None]
  - COUGH [None]
  - HEADACHE [None]
  - PHARYNGOLARYNGEAL PAIN [None]
